FAERS Safety Report 17944002 (Version 42)
Quarter: 2024Q1

REPORT INFORMATION
  Report Type: Spontaneous
  Country: US (occurrence: US)
  Receive Date: 20200625
  Receipt Date: 20240216
  Transmission Date: 20240409
  Serious: Yes (Other)
  Sender: FDA-Public Use
  Company Number: US-PFIZER INC-2020243628

PATIENT
  Age: 64 Year
  Sex: Female
  Weight: 58.06 kg

DRUGS (6)
  1. PREMARIN [Suspect]
     Active Substance: ESTROGENS, CONJUGATED
     Indication: Vulvovaginal dryness
     Dosage: 0.625 MG, APPLY THREE TIMES A WEEK (MON, WED, FRI)
     Route: 067
  2. PREMARIN [Suspect]
     Active Substance: ESTROGENS, CONJUGATED
     Indication: Menopausal symptoms
     Dosage: 1.0, 3 TIMES A WEEK AND SHE USES IT ON MONDAY WEDNESDAY AND FRIDAY
  3. PREMARIN [Suspect]
     Active Substance: ESTROGENS, CONJUGATED
     Indication: Night sweats
  4. PREMARIN [Suspect]
     Active Substance: ESTROGENS, CONJUGATED
     Indication: Hot flush
     Dosage: 0.3 MG, DAILY
     Route: 048
  5. PREMARIN [Suspect]
     Active Substance: ESTROGENS, CONJUGATED
     Indication: Menopausal symptoms
     Dosage: 0.3 MG, 1X/DAY (SHE TAKES IT USUALLY AT NIGHT)
     Route: 048
  6. PREMARIN [Suspect]
     Active Substance: ESTROGENS, CONJUGATED
     Indication: Night sweats

REACTIONS (19)
  - Urinary tract infection [Unknown]
  - Optic nerve injury [Unknown]
  - Blindness [Unknown]
  - Cataract [Unknown]
  - Osteoarthritis [Unknown]
  - Arthropathy [Unknown]
  - Spinal osteoarthritis [Unknown]
  - Vulvovaginal pain [Unknown]
  - Body height decreased [Unknown]
  - Pain [Not Recovered/Not Resolved]
  - Anger [Unknown]
  - Frustration tolerance decreased [Unknown]
  - Arthritis [Unknown]
  - Fibromyalgia [Unknown]
  - Hypertension [Unknown]
  - Poor quality sleep [Unknown]
  - Fatigue [Unknown]
  - Malaise [Unknown]
  - Off label use [Unknown]

NARRATIVE: CASE EVENT DATE: 20240212
